FAERS Safety Report 11889788 (Version 1)
Quarter: 2016Q1

REPORT INFORMATION
  Report Type: Spontaneous
  Country: US (occurrence: US)
  Receive Date: 20160105
  Receipt Date: 20160105
  Transmission Date: 20160526
  Serious: No
  Sender: FDA-Public Use
  Company Number: US-BAYER-2016-001309

PATIENT
  Age: 69 Year
  Sex: Female
  Weight: 68.2 kg

DRUGS (2)
  1. ALEVE [Suspect]
     Active Substance: NAPROXEN SODIUM
     Dosage: 1 DF, PRN
     Route: 048
     Dates: start: 201504
  2. OCUVITE [VIT C,BETACAROT,CUPRIC OXIDE,SE+,VIT E,ZNO] [Concomitant]
     Dosage: UNK

REACTIONS (2)
  - Expired product administered [None]
  - Product use issue [None]

NARRATIVE: CASE EVENT DATE: 201504
